FAERS Safety Report 18767178 (Version 2)
Quarter: 2021Q1

REPORT INFORMATION
  Report Type: Spontaneous
  Country: CA (occurrence: CA)
  Receive Date: 20210121
  Receipt Date: 20210319
  Transmission Date: 20210419
  Serious: Yes (Other)
  Sender: FDA-Public Use
  Company Number: CA-B.I. PHARMACEUTICALS,INC./RIDGEFIELD-2021-BI-076866

PATIENT
  Age: 53 Year
  Sex: Female
  Weight: 60 kg

DRUGS (51)
  1. CIPROFLOXACIN HYDROCHLORIDE. [Suspect]
     Active Substance: CIPROFLOXACIN HYDROCHLORIDE
     Indication: URTICARIA
     Route: 065
  2. INDOMETHACIN [INDOMETACIN] [Suspect]
     Active Substance: INDOMETHACIN
     Indication: ABDOMINAL PAIN UPPER
  3. KETAMINE [Suspect]
     Active Substance: KETAMINE
     Indication: HALLUCINATION
     Route: 065
  4. NOVORAPID [Suspect]
     Active Substance: INSULIN ASPART
     Indication: TYPE 2 DIABETES MELLITUS
     Dosage: SOLUTION SUBCUTANEOUS
     Route: 058
  5. CELEBREX [Suspect]
     Active Substance: CELECOXIB
     Indication: OESOPHAGEAL PAIN
     Route: 065
  6. CELEBREX [Suspect]
     Active Substance: CELECOXIB
     Indication: ABDOMINAL PAIN UPPER
  7. FOSAVANCE [Suspect]
     Active Substance: ALENDRONATE SODIUM\CHOLECALCIFEROL
     Indication: OSTEOPOROSIS POSTMENOPAUSAL
     Dosage: 1.0 DOSAGE FORMS
     Route: 065
  8. POTASSIUM CHLORIDE. [Suspect]
     Active Substance: POTASSIUM CHLORIDE
     Indication: PRODUCT USED FOR UNKNOWN INDICATION
     Dosage: 1.0 DOSAGE FORMS
     Route: 065
  9. SENOKOT [Suspect]
     Active Substance: SENNOSIDES
     Indication: ABDOMINAL PAIN
     Route: 065
  10. CEPHALEXIN [CEFALEXIN] [Suspect]
     Active Substance: CEPHALEXIN
     Indication: DIZZINESS
  11. PENICILLIN G [BENZYLPENICILLIN] [Suspect]
     Active Substance: PENICILLIN G
     Indication: PRODUCT USED FOR UNKNOWN INDICATION
  12. TIOTROPIUM BROMIDE [Suspect]
     Active Substance: TIOTROPIUM BROMIDE
     Indication: PRODUCT USED FOR UNKNOWN INDICATION
  13. WELLBUTRIN [Suspect]
     Active Substance: BUPROPION HYDROCHLORIDE
     Indication: URTICARIA
     Dosage: TABLET (EXTENDED?RELEASE)
  14. CEFUROXIME AXETIL. [Suspect]
     Active Substance: CEFUROXIME AXETIL
     Indication: MALAISE
  15. APO?FERROUS GLUCONATE [Suspect]
     Active Substance: FERROUS GLUCONATE
     Indication: IRON DEFICIENCY
  16. FLOVENT [Suspect]
     Active Substance: FLUTICASONE PROPIONATE
     Indication: ASTHMA
  17. NITROGLYCERIN. [Suspect]
     Active Substance: NITROGLYCERIN
     Indication: OESOPHAGEAL SPASM
  18. AMITRIPTYLINE [Suspect]
     Active Substance: AMITRIPTYLINE
     Indication: DEPRESSION
     Route: 065
  19. BUPROPION. [Suspect]
     Active Substance: BUPROPION
     Indication: URTICARIA
     Route: 065
  20. PERINDOPRIL [Suspect]
     Active Substance: PERINDOPRIL
     Indication: BLOOD PRESSURE MEASUREMENT
     Dosage: 1.0 DOSAGE FORMS
     Route: 065
  21. PREDNISONE. [Suspect]
     Active Substance: PREDNISONE
     Indication: PRODUCT USED FOR UNKNOWN INDICATION
     Dosage: NOT SPECIFIED
     Route: 065
  22. VIOXX [Suspect]
     Active Substance: ROFECOXIB
     Indication: URTICARIA
     Route: 065
  23. APO FUROSEMIDE [Suspect]
     Active Substance: FUROSEMIDE
     Indication: FLUID RETENTION
  24. BREO ELLIPTA [Suspect]
     Active Substance: FLUTICASONE FUROATE\VILANTEROL TRIFENATATE
     Indication: PRODUCT USED FOR UNKNOWN INDICATION
     Dosage: 1 DOSAGE FORM
     Route: 055
  25. CEPHALEXIN [CEFALEXIN] [Suspect]
     Active Substance: CEPHALEXIN
     Indication: VOMITING
  26. COVERSYL [PERINDOPRIL ARGININE] [Suspect]
     Active Substance: PERINDOPRIL ARGININE
     Indication: BLOOD PRESSURE MEASUREMENT
     Dosage: 1 DOSAGE FORM
  27. FLOVENT [Suspect]
     Active Substance: FLUTICASONE PROPIONATE
     Indication: CHRONIC OBSTRUCTIVE PULMONARY DISEASE
     Dosage: 1 DOSAGE FORM. NOT SPECIFIED.
  28. CEFUROXIME AXETIL. [Suspect]
     Active Substance: CEFUROXIME AXETIL
     Indication: FATIGUE
     Route: 065
  29. CLOPIDOGREL [Suspect]
     Active Substance: CLOPIDOGREL BISULFATE
     Indication: ANTICOAGULANT THERAPY
     Dosage: 1.0 DOSAGE FORMS
     Route: 065
  30. CYMBALTA [Suspect]
     Active Substance: DULOXETINE HYDROCHLORIDE
     Indication: ANXIETY
  31. FERROUS GLUCONATE [Suspect]
     Active Substance: FERROUS GLUCONATE
     Indication: IRON DEFICIENCY
     Dosage: 1 DOSAGE FORM
     Route: 065
  32. TYLENOL WITH CODEINE [Suspect]
     Active Substance: ACETAMINOPHEN\CODEINE PHOSPHATE
     Indication: PRURITUS
     Dosage: NOT SPECIFIED
     Route: 065
  33. CYMBALTA [Suspect]
     Active Substance: DULOXETINE HYDROCHLORIDE
     Indication: DEPRESSION
     Dosage: 1 DOSAGE FORM, NOT SPECIFIED
     Route: 065
  34. GABAPENTIN. [Suspect]
     Active Substance: GABAPENTIN
     Indication: PRODUCT USED FOR UNKNOWN INDICATION
     Dosage: NOT SPECIFIED
     Route: 065
  35. GLYCERYL TRINITRATE [Suspect]
     Active Substance: NITROGLYCERIN
     Indication: OESOPHAGEAL SPASM
     Route: 065
  36. GRAVOL [Suspect]
     Active Substance: DIMENHYDRINATE
     Indication: ANXIETY
     Dosage: NOT SPECIFIED
     Route: 065
  37. ALENDRONATE SODIUM AND VITAMIN D3 [Suspect]
     Active Substance: ALENDRONATE SODIUM\CHOLECALCIFEROL
     Indication: OSTEOPOROSIS POSTMENOPAUSAL
     Dosage: 1 DOSAGE FORM 1 EVERY 1 WEEK
  38. CEPHALEXIN [CEFALEXIN] [Suspect]
     Active Substance: CEPHALEXIN
     Indication: MALAISE
  39. ATROVENT [Suspect]
     Active Substance: IPRATROPIUM BROMIDE
     Indication: PRODUCT USED FOR UNKNOWN INDICATION
     Dosage: METERED?DOSE (AEROSOL)
     Route: 065
  40. FUROSEMIDE. [Suspect]
     Active Substance: FUROSEMIDE
     Indication: FLUID RETENTION
     Route: 065
  41. INDOMETHACIN [INDOMETACIN] [Suspect]
     Active Substance: INDOMETHACIN
     Indication: VISION BLURRED
  42. MACROBID [CLARITHROMYCIN] [Suspect]
     Active Substance: CLARITHROMYCIN
     Indication: CYSTITIS
     Route: 065
  43. AVELOX [Suspect]
     Active Substance: MOXIFLOXACIN HYDROCHLORIDE
     Indication: RASH
     Dosage: NOT SPECIFIED
  44. NITROFURANTOIN. [Suspect]
     Active Substance: NITROFURANTOIN
     Indication: CYSTITIS
  45. SPIRIVA [Suspect]
     Active Substance: TIOTROPIUM BROMIDE MONOHYDRATE
     Indication: PRODUCT USED FOR UNKNOWN INDICATION
     Route: 065
  46. APO?SULFATRIM [Suspect]
     Active Substance: SULFAMETHOXAZOLE\TRIMETHOPRIM
     Indication: STOMATITIS
     Dosage: NOT SPECIFIED
     Route: 065
  47. CEFUROXIME AXETIL. [Suspect]
     Active Substance: CEFUROXIME AXETIL
     Indication: DIARRHOEA
  48. INDOMETHACIN [INDOMETACIN] [Suspect]
     Active Substance: INDOMETHACIN
     Indication: VOMITING
     Route: 065
  49. MOXIFLOXACIN HYDROCHLORIDE. [Suspect]
     Active Substance: MOXIFLOXACIN HYDROCHLORIDE
     Indication: RASH
     Route: 065
  50. NAPROXEN SODIUM. [Suspect]
     Active Substance: NAPROXEN SODIUM
     Indication: PRURITUS
     Dosage: NOT SPECIFIED
     Route: 065
  51. SALBUTAMOL [Suspect]
     Active Substance: ALBUTEROL
     Indication: PRODUCT USED FOR UNKNOWN INDICATION
     Dosage: NOT SPECIFIED
     Route: 065

REACTIONS (30)
  - Agitation [Not Recovered/Not Resolved]
  - Bronchitis [Not Recovered/Not Resolved]
  - Diarrhoea [Not Recovered/Not Resolved]
  - Lymphoedema [Not Recovered/Not Resolved]
  - Rash [Not Recovered/Not Resolved]
  - Urticaria [Not Recovered/Not Resolved]
  - Dizziness [Not Recovered/Not Resolved]
  - Fatigue [Not Recovered/Not Resolved]
  - Migraine [Not Recovered/Not Resolved]
  - Oesophageal spasm [Not Recovered/Not Resolved]
  - Stomatitis [Not Recovered/Not Resolved]
  - Abdominal pain [Not Recovered/Not Resolved]
  - Anxiety [Not Recovered/Not Resolved]
  - Hyperhidrosis [Not Recovered/Not Resolved]
  - Malaise [Not Recovered/Not Resolved]
  - Oesophageal pain [Not Recovered/Not Resolved]
  - Vision blurred [Not Recovered/Not Resolved]
  - Feeling abnormal [Not Recovered/Not Resolved]
  - Depression [Not Recovered/Not Resolved]
  - Pneumonia [Not Recovered/Not Resolved]
  - Pruritus [Not Recovered/Not Resolved]
  - Sleep apnoea syndrome [Not Recovered/Not Resolved]
  - Abdominal pain upper [Not Recovered/Not Resolved]
  - Hallucination [Not Recovered/Not Resolved]
  - Myocardial infarction [Not Recovered/Not Resolved]
  - Tinnitus [Not Recovered/Not Resolved]
  - Vomiting [Not Recovered/Not Resolved]
  - Cystitis [Not Recovered/Not Resolved]
  - Fibromyalgia [Not Recovered/Not Resolved]
  - Fluid retention [Not Recovered/Not Resolved]
